FAERS Safety Report 14306496 (Version 1)
Quarter: 2017Q4

REPORT INFORMATION
  Report Type: Spontaneous
  Country: FR (occurrence: FR)
  Receive Date: 20171220
  Receipt Date: 20171220
  Transmission Date: 20180321
  Serious: Yes (Other)
  Sender: FDA-Public Use
  Company Number: FR-MERCK KGAA-2037440

PATIENT
  Age: 66 Year
  Sex: Female

DRUGS (1)
  1. NOVOTHYROX [Suspect]
     Active Substance: LEVOTHYROXINE SODIUM
     Indication: PRODUCT USED FOR UNKNOWN INDICATION

REACTIONS (13)
  - Irritability [None]
  - Fatigue [Not Recovered/Not Resolved]
  - Muscle spasms [Not Recovered/Not Resolved]
  - Social avoidant behaviour [Unknown]
  - Blood thyroid stimulating hormone increased [None]
  - Headache [Not Recovered/Not Resolved]
  - Aggression [None]
  - Vertigo [None]
  - Crying [None]
  - Fall [None]
  - Heart rate irregular [None]
  - Insomnia [Not Recovered/Not Resolved]
  - Loss of libido [None]

NARRATIVE: CASE EVENT DATE: 2017
